FAERS Safety Report 9038203 (Version 1)
Quarter: 2013Q1

REPORT INFORMATION
  Report Type: Spontaneous
  Country: US (occurrence: US)
  Receive Date: 20130129
  Receipt Date: 20130129
  Transmission Date: 20140127
  Serious: No
  Sender: FDA-Public Use
  Company Number: US-GLAXOSMITHKLINE-A0982004A

PATIENT
  Sex: Female

DRUGS (4)
  1. WELLBUTRIN XL [Suspect]
     Indication: DEPRESSION
     Dosage: 300MG PER DAY
     Route: 048
  2. CENTRUM [Concomitant]
  3. LOSARTAN [Concomitant]
  4. OMEPRAZOLE [Concomitant]

REACTIONS (4)
  - Dyspnoea [Unknown]
  - Tremor [Unknown]
  - Feeling cold [Unknown]
  - Feeling hot [Unknown]
